FAERS Safety Report 22687550 (Version 4)
Quarter: 2023Q4

REPORT INFORMATION
  Report Type: Spontaneous
  Country: US (occurrence: US)
  Receive Date: 20230710
  Receipt Date: 20231018
  Transmission Date: 20240110
  Serious: No
  Sender: FDA-Public Use
  Company Number: US-PFIZER INC-PV202300115051

PATIENT
  Age: 16 Year
  Sex: Male
  Weight: 76.19 kg

DRUGS (1)
  1. GENOTROPIN [Suspect]
     Active Substance: SOMATROPIN
     Dosage: 4.8 MG, 6 DAYS A WEEK

REACTIONS (2)
  - Device mechanical issue [Unknown]
  - Poor quality device used [Unknown]
